FAERS Safety Report 6142718-9 (Version None)
Quarter: 2009Q2

REPORT INFORMATION
  Report Type: 
  Country: None (occurrence: None)
  Receive Date: 20090403
  Receipt Date: 20090330
  Transmission Date: 20091009
  Serious: Yes (Other)
  Sender: FDA-Public Use
  Company Number: CH-ROXANE LABORATORIES, INC.-2009-RO-00300RO

PATIENT
  Age: 55 Year
  Sex: Female

DRUGS (2)
  1. MORPHINE [Suspect]
     Indication: PAIN
     Dosage: 20MG
     Route: 048
  2. MORPHINE [Suspect]
     Dosage: 75MG
     Route: 048

REACTIONS (1)
  - THERAPEUTIC RESPONSE DECREASED [None]
